FAERS Safety Report 10688254 (Version 1)
Quarter: 2014Q4

REPORT INFORMATION
  Report Type: Spontaneous
  Country: US (occurrence: None)
  Receive Date: 20141231
  Receipt Date: 20141231
  Transmission Date: 20150529
  Serious: Yes (Other)
  Sender: FDA-Public Use
  Company Number: DEP_02412_2014

PATIENT
  Age: 81 Year
  Sex: Female
  Weight: 74.84 kg

DRUGS (11)
  1. ASPIRIN. [Concomitant]
     Active Substance: ASPIRIN
  2. TEGRETOL [Concomitant]
     Active Substance: CARBAMAZEPINE
  3. GRALISE [Suspect]
     Active Substance: GABAPENTIN
     Indication: TRIGEMINAL NEURALGIA
     Dosage: TITRATED UP TO 1800 MG, ONCE DAILY, IN THE EVENING ORAL)
     Route: 048
     Dates: start: 201301
  4. CALCIUM, COMBINATIONS WITH VITAMIN D AND/OR O [Concomitant]
  5. CENOVIS FISH OIL WITH OMEGA 3 [Concomitant]
     Active Substance: FISH OIL
  6. MAGNESIUM [Concomitant]
     Active Substance: MAGNESIUM
  7. BIOTIN [Concomitant]
     Active Substance: BIOTIN
  8. OMEPRAZOLE. [Concomitant]
     Active Substance: OMEPRAZOLE
  9. CHONDROITIN SULFATE (BOVINE)\GLUCOSAMINE SULFATE [Concomitant]
     Active Substance: CHONDROITIN SULFATE (BOVINE)\GLUCOSAMINE SULFATE
  10. PRAVASTATIN [Concomitant]
     Active Substance: PRAVASTATIN\PRAVASTATIN SODIUM
  11. GRALISE [Suspect]
     Active Substance: GABAPENTIN
     Indication: OFF LABEL USE
     Dosage: TITRATED UP TO 1800 MG, ONCE DAILY, IN THE EVENING ORAL)
     Route: 048
     Dates: start: 201301

REACTIONS (4)
  - Fall [None]
  - Facial pain [None]
  - Head injury [None]
  - Alopecia [None]

NARRATIVE: CASE EVENT DATE: 20130602
